FAERS Safety Report 18292431 (Version 2)
Quarter: 2020Q4

REPORT INFORMATION
  Report Type: Report from Study
  Country: CO (occurrence: CO)
  Receive Date: 20200921
  Receipt Date: 20201029
  Transmission Date: 20210113
  Serious: Yes (Other)
  Sender: FDA-Public Use
  Company Number: NVSC2020CO063496

PATIENT
  Age: 15 Year
  Sex: Female
  Weight: 65 kg

DRUGS (4)
  1. REVOLADE [Suspect]
     Active Substance: ELTROMBOPAG
     Indication: THROMBOCYTOPENIC PURPURA
     Dosage: 50 MG, QD
     Route: 048
  2. REVOLADE [Suspect]
     Active Substance: ELTROMBOPAG
     Indication: IMMUNE THROMBOCYTOPENIA
     Dosage: 75 MG, QD
     Route: 048
     Dates: end: 20200909
  3. MICROGYNON [Concomitant]
     Active Substance: ETHINYL ESTRADIOL\LEVONORGESTREL ACETATE
     Indication: MENORRHAGIA
     Dosage: UNK UNK, QD (SOFT)
     Route: 048
  4. CALCIUM [Concomitant]
     Active Substance: CALCIUM
     Indication: PRODUCT USED FOR UNKNOWN INDICATION
     Route: 065

REACTIONS (6)
  - Contusion [Recovered/Resolved]
  - Petechiae [Recovered/Resolved]
  - Incorrect dose administered [Unknown]
  - Pain [Unknown]
  - Platelet count decreased [Unknown]
  - Furuncle [Recovering/Resolving]

NARRATIVE: CASE EVENT DATE: 20200320
